FAERS Safety Report 22159509 (Version 1)
Quarter: 2023Q1

REPORT INFORMATION
  Report Type: Spontaneous
  Country: None (occurrence: US)
  Receive Date: 20230331
  Receipt Date: 20230331
  Transmission Date: 20230418
  Serious: No
  Sender: FDA-Public Use
  Company Number: US-Ajanta Pharma USA Inc.-2139739

PATIENT
  Age: 77 Year
  Sex: Female

DRUGS (1)
  1. CHOLESTYRAMINE [Suspect]
     Active Substance: CHOLESTYRAMINE
     Indication: Gallbladder disorder
     Route: 048
     Dates: start: 20230209

REACTIONS (5)
  - Foreign body in throat [Unknown]
  - Foreign body in mouth [Unknown]
  - Off label use [Unknown]
  - Product substitution issue [Unknown]
  - Product physical consistency issue [Unknown]

NARRATIVE: CASE EVENT DATE: 20230209
